FAERS Safety Report 12376153 (Version 15)
Quarter: 2017Q4

REPORT INFORMATION
  Report Type: Report from Study
  Country: CZ (occurrence: CZ)
  Receive Date: 20160517
  Receipt Date: 20171211
  Transmission Date: 20180320
  Serious: Yes (Hospitalization)
  Sender: FDA-Public Use
  Company Number: CZ-SA-2016SA094940

PATIENT
  Age: 27 Year
  Sex: Female
  Weight: 53 kg

DRUGS (19)
  1. LEMTRADA [Suspect]
     Active Substance: ALEMTUZUMAB
     Indication: MULTIPLE SCLEROSIS RELAPSE
     Route: 041
     Dates: start: 20160425, end: 20160429
  2. HERPESIN [Concomitant]
     Route: 065
     Dates: end: 20160529
  3. FRAXIPARINE [Concomitant]
     Active Substance: NADROPARIN CALCIUM
     Dosage: FRAXIPARINE MULTI?10X5 ML/47.5KU, 0.3 ML S.C., 6 P.M.
     Route: 058
  4. NEURONTIN [Concomitant]
     Active Substance: GABAPENTIN
     Indication: MULTIPLE SCLEROSIS
     Route: 048
     Dates: start: 20150210
  5. HERPESIN [Concomitant]
     Indication: PROPHYLAXIS
     Route: 048
     Dates: start: 20160510
  6. ZOLOFT [Concomitant]
     Active Substance: SERTRALINE HYDROCHLORIDE
     Route: 048
  7. MAGNOSOLV [Concomitant]
     Indication: MULTIPLE SCLEROSIS
     Dosage: MAGNOSOLV SOLUBLE GRANULES SOLUTION 1X/DAY
     Route: 048
     Dates: start: 20140415
  8. AKTIFERRIN [Concomitant]
     Active Substance: FERROUS SULFATE\SERINE
     Route: 065
  9. PARALEN [Concomitant]
     Active Substance: ACETAMINOPHEN
     Indication: PROPHYLAXIS
     Route: 048
     Dates: start: 20160425, end: 20160429
  10. DEGAN [Concomitant]
     Active Substance: METOCLOPRAMIDE HYDROCHLORIDE
     Indication: PROPHYLAXIS
     Route: 048
     Dates: start: 20160510
  11. ZYRTEC [Concomitant]
     Active Substance: CETIRIZINE HYDROCHLORIDE
     Route: 065
  12. VIGANTOL [Concomitant]
     Active Substance: CHOLECALCIFEROL
     Dosage: 3 DROPS IN THE MORNING
     Route: 047
  13. NOVALGIN [Concomitant]
     Active Substance: METAMIZOLE SODIUM
     Route: 048
  14. HERPESIN [Concomitant]
     Indication: PROPHYLAXIS
     Route: 048
     Dates: start: 20160425
  15. ZOLOFT [Concomitant]
     Active Substance: SERTRALINE HYDROCHLORIDE
     Indication: MULTIPLE SCLEROSIS
     Route: 048
     Dates: start: 20150210
  16. DITHIADEN [Concomitant]
     Active Substance: BISULEPIN
     Indication: PROPHYLAXIS
     Route: 048
     Dates: start: 20160425, end: 20160429
  17. METHYLPREDNISOLONE. [Concomitant]
     Active Substance: METHYLPREDNISOLONE
     Route: 065
  18. HELICID [Concomitant]
     Active Substance: OMEPRAZOLE
     Indication: PROPHYLAXIS
     Route: 048
     Dates: start: 20160510
  19. MILGAMMA [Concomitant]
     Active Substance: VITAMIN B
     Route: 030

REACTIONS (5)
  - Multiple sclerosis relapse [Recovered/Resolved]
  - Multiple sclerosis relapse [Recovered/Resolved]
  - Meningitis listeria [Recovered/Resolved]
  - Urticaria [Recovered/Resolved]
  - Multiple sclerosis relapse [Recovered/Resolved]

NARRATIVE: CASE EVENT DATE: 20160428
